FAERS Safety Report 5533180-5 (Version None)
Quarter: 2007Q4

REPORT INFORMATION
  Report Type: 
  Country: None (occurrence: None)
  Receive Date: 20071204
  Receipt Date: 20071126
  Transmission Date: 20080405
  Serious: Yes (Other)
  Sender: FDA-Public Use
  Company Number: GB-ROCHE-534008

PATIENT
  Age: 9 Year
  Sex: Male
  Weight: 25 kg

DRUGS (2)
  1. CEFTRIAXONE SODIUM [Suspect]
     Indication: MENINGITIS
     Route: 042
     Dates: start: 20071110, end: 20071111
  2. LEMSIP COLD + FLU ORIGINAL [Concomitant]

REACTIONS (2)
  - LIP SWELLING [None]
  - URTICARIA [None]
